FAERS Safety Report 22392303 (Version 1)
Quarter: 2023Q2

REPORT INFORMATION
  Report Type: Spontaneous
  Country: US (occurrence: US)
  Receive Date: 20230601
  Receipt Date: 20230601
  Transmission Date: 20230721
  Serious: Yes (Life-Threatening, Hospitalization)
  Sender: FDA-Public Use
  Company Number: US-JNJFOC-20230559524

PATIENT

DRUGS (1)
  1. DIPHENHYDRAMINE HYDROCHLORIDE [Suspect]
     Active Substance: DIPHENHYDRAMINE HYDROCHLORIDE
     Indication: Product used for unknown indication
     Route: 065

REACTIONS (18)
  - Suicide attempt [Unknown]
  - Depressed level of consciousness [Unknown]
  - Tachycardia [Unknown]
  - Toxicity to various agents [Unknown]
  - Mydriasis [Unknown]
  - Hallucination [Unknown]
  - Erythema [Unknown]
  - Urinary retention [Unknown]
  - Hyperthermia [Unknown]
  - Vision blurred [Unknown]
  - Ileus [Unknown]
  - Respiratory depression [Unknown]
  - Seizure [Unknown]
  - Ventricular arrhythmia [Unknown]
  - Coma [Unknown]
  - Delirium [Unknown]
  - Agitation [Unknown]
  - Anticholinergic syndrome [Unknown]
